FAERS Safety Report 14223649 (Version 2)
Quarter: 2018Q3

REPORT INFORMATION
  Report Type: Report from Study
  Country: BE (occurrence: BE)
  Receive Date: 20171124
  Receipt Date: 20180702
  Transmission Date: 20181010
  Serious: Yes (Other)
  Sender: FDA-Public Use
  Company Number: BE-AEGERION PHARMACEUTICAL, INC-AEGR003405

PATIENT

DRUGS (8)
  1. HUMALOG 200 [Concomitant]
     Indication: DIABETES MELLITUS
     Dosage: 26 IU, UNK
     Route: 058
  2. MYALEPT [Suspect]
     Active Substance: METRELEPTIN
     Dosage: 10 MG, BID
     Dates: start: 201709
  3. METFORMAX [Concomitant]
     Active Substance: METFORMIN HYDROCHLORIDE
     Indication: DIABETES MELLITUS
     Dosage: 1275 MG, UNK
     Route: 048
     Dates: start: 20170926
  4. TOUJEO [Concomitant]
     Active Substance: INSULIN GLARGINE
     Indication: DIABETES MELLITUS
     Dosage: 20 IU, UNK
     Route: 058
     Dates: start: 20170928
  5. HUMALOG 200 [Concomitant]
     Dosage: 24 IU, UNK
     Route: 058
  6. ACTOS [Concomitant]
     Active Substance: PIOGLITAZONE HYDROCHLORIDE
     Indication: DIABETES MELLITUS
     Dosage: 30 MG, UNK
     Route: 048
     Dates: start: 20170929
  7. HUMALOG 200 [Concomitant]
     Dosage: 20 IU, UNK
     Route: 058
  8. MYALEPT [Suspect]
     Active Substance: METRELEPTIN
     Indication: CONGENITAL GENERALISED LIPODYSTROPHY
     Dosage: 10 MG, QD
     Dates: start: 20000926, end: 201707

REACTIONS (7)
  - Hepatomegaly [Unknown]
  - Condition aggravated [Unknown]
  - Insulin resistance [Unknown]
  - Drug ineffective [Unknown]
  - Ovarian cyst ruptured [Unknown]
  - Hepatic steatosis [Unknown]
  - Therapy cessation [Recovered/Resolved]

NARRATIVE: CASE EVENT DATE: 20150819
